FAERS Safety Report 16377646 (Version 3)
Quarter: 2019Q2

REPORT INFORMATION
  Report Type: Report from Study
  Country: US (occurrence: US)
  Receive Date: 20190531
  Receipt Date: 20190620
  Transmission Date: 20190711
  Serious: No
  Sender: FDA-Public Use
  Company Number: PHEH2019US022866

PATIENT
  Sex: Male

DRUGS (1)
  1. ENTRESTO [Suspect]
     Active Substance: SACUBITRIL\VALSARTAN
     Indication: CARDIAC FAILURE
     Dosage: 24 MG SACUBITRIL AND 26 MG VALSARTAN
     Route: 048
     Dates: start: 20190524

REACTIONS (3)
  - Diarrhoea [Unknown]
  - Malaise [Unknown]
  - Asthenia [Recovering/Resolving]
